FAERS Safety Report 10354881 (Version 3)
Quarter: 2014Q3

REPORT INFORMATION
  Report Type: Spontaneous
  Country: US (occurrence: US)
  Receive Date: 20140731
  Receipt Date: 20140826
  Transmission Date: 20150326
  Serious: Yes (Other)
  Sender: FDA-Public Use
  Company Number: US-GLAXOSMITHKLINE-A1080798A

PATIENT
  Age: 66 Year
  Sex: Female

DRUGS (10)
  1. LEVOTHYROXINE [Concomitant]
     Active Substance: LEVOTHYROXINE
  2. PENICILLIN [Suspect]
     Active Substance: PENICILLIN
     Indication: PRODUCT USED FOR UNKNOWN INDICATION
     Route: 065
  3. LIBRIUM [Concomitant]
     Active Substance: CHLORDIAZEPOXIDE HYDROCHLORIDE
  4. MULTIVITAMIN [Concomitant]
     Active Substance: VITAMINS
  5. VENTOLIN [Suspect]
     Active Substance: ALBUTEROL SULFATE
     Indication: SINUS CONGESTION
     Dosage: 2PUFF AT NIGHT
     Route: 055
     Dates: start: 201212
  6. ZOCOR [Concomitant]
     Active Substance: SIMVASTATIN
  7. ZOLOFT [Concomitant]
     Active Substance: SERTRALINE HYDROCHLORIDE
  8. XANAX [Concomitant]
     Active Substance: ALPRAZOLAM
  9. NEURONTIN [Concomitant]
     Active Substance: GABAPENTIN
  10. NEXIUM [Concomitant]
     Active Substance: ESOMEPRAZOLE MAGNESIUM

REACTIONS (10)
  - Sinus congestion [Unknown]
  - Therapeutic response changed [Unknown]
  - Drug hypersensitivity [Unknown]
  - Productive cough [Recovered/Resolved]
  - Paranasal sinus hypersecretion [Recovered/Resolved]
  - Chest discomfort [Recovered/Resolved]
  - Pathogen resistance [Unknown]
  - Respiratory tract congestion [Recovered/Resolved]
  - Cough [Recovered/Resolved]
  - Insomnia [Recovered/Resolved]

NARRATIVE: CASE EVENT DATE: 201212
